FAERS Safety Report 23405449 (Version 1)
Quarter: 2024Q1

REPORT INFORMATION
  Report Type: Spontaneous
  Country: ES (occurrence: ES)
  Receive Date: 20240116
  Receipt Date: 20240116
  Transmission Date: 20240409
  Serious: Yes (Other)
  Sender: FDA-Public Use
  Company Number: ES-BAYER-2024A006620

PATIENT
  Sex: Male

DRUGS (1)
  1. EYLEA [Suspect]
     Active Substance: AFLIBERCEPT
     Indication: Product used for unknown indication
     Dosage: UNK, ONCE, 40 MG/ML, SOLUTION FOR INJECTION IN PRE-FILLED SYRINGE
     Dates: start: 202312, end: 202312

REACTIONS (1)
  - Amaurosis [Recovered/Resolved]

NARRATIVE: CASE EVENT DATE: 20231201
